FAERS Safety Report 17652217 (Version 1)
Quarter: 2020Q2

REPORT INFORMATION
  Report Type: Report from Study
  Country: FR (occurrence: FR)
  Receive Date: 20200409
  Receipt Date: 20200409
  Transmission Date: 20200713
  Serious: Yes (Death)
  Sender: FDA-Public Use
  Company Number: FR-ACTELION-A-CH2018-179420

PATIENT
  Age: 44 Year
  Sex: Female
  Weight: 57 kg

DRUGS (12)
  1. UPTRAVI [Suspect]
     Active Substance: SELEXIPAG
     Dosage: 1000 ?G, BID
     Route: 048
     Dates: start: 20181101
  2. UPTRAVI [Suspect]
     Active Substance: SELEXIPAG
     Dosage: 600 ?G, BID
     Route: 048
     Dates: start: 20181015
  3. UPTRAVI [Suspect]
     Active Substance: SELEXIPAG
     Dosage: 1600 ?G, BID
     Route: 048
     Dates: start: 20181129
  4. OPSUMIT [Concomitant]
     Active Substance: MACITENTAN
     Indication: PULMONARY ARTERIAL HYPERTENSION
  5. UPTRAVI [Suspect]
     Active Substance: SELEXIPAG
     Dosage: 1200 ?G, BID
     Route: 048
     Dates: start: 20181115
  6. UPTRAVI [Suspect]
     Active Substance: SELEXIPAG
     Dosage: 1400 ?G, BID
     Route: 048
     Dates: start: 20181122
  7. DIFFU K [Concomitant]
     Active Substance: POTASSIUM CHLORIDE
     Dosage: 12 DF, QD
  8. UPTRAVI [Suspect]
     Active Substance: SELEXIPAG
     Indication: PULMONARY ARTERIAL HYPERTENSION
     Dosage: 200 ?G, BID
     Route: 048
     Dates: start: 20180919
  9. UPTRAVI [Suspect]
     Active Substance: SELEXIPAG
     Dosage: 400 ?G, BID
     Route: 048
     Dates: start: 20181001
  10. UPTRAVI [Suspect]
     Active Substance: SELEXIPAG
     Dosage: 800 ?G, BID
     Route: 048
     Dates: start: 20181025
  11. UPTRAVI [Suspect]
     Active Substance: SELEXIPAG
     Dosage: 1400 ?G, BID
     Route: 048
     Dates: start: 20190114
  12. TADALAFIL. [Concomitant]
     Active Substance: TADALAFIL
     Indication: PULMONARY ARTERIAL HYPERTENSION

REACTIONS (26)
  - Pain in extremity [Not Recovered/Not Resolved]
  - Fatigue [Not Recovered/Not Resolved]
  - Diarrhoea [Recovered/Resolved]
  - Cough [Recovering/Resolving]
  - Decreased appetite [Not Recovered/Not Resolved]
  - Nasopharyngitis [Recovering/Resolving]
  - Oedema peripheral [Not Recovered/Not Resolved]
  - Incorrect dose administered [Unknown]
  - Bronchitis [Recovering/Resolving]
  - Apathy [Not Recovered/Not Resolved]
  - Vomiting [Recovered/Resolved]
  - Weight decreased [Not Recovered/Not Resolved]
  - Rhinorrhoea [Recovering/Resolving]
  - Nasal congestion [Recovering/Resolving]
  - Insomnia [Not Recovered/Not Resolved]
  - Mouth ulceration [Not Recovered/Not Resolved]
  - Food aversion [Not Recovered/Not Resolved]
  - Headache [Recovered/Resolved]
  - Arthralgia [Recovered/Resolved]
  - Blood potassium decreased [Not Recovered/Not Resolved]
  - Pallor [Unknown]
  - Death [Fatal]
  - Nausea [Not Recovered/Not Resolved]
  - Myalgia [Recovering/Resolving]
  - Weight increased [Recovered/Resolved]
  - Anxiety [Unknown]

NARRATIVE: CASE EVENT DATE: 20180919
